FAERS Safety Report 21531162 (Version 2)
Quarter: 2022Q4

REPORT INFORMATION
  Report Type: Spontaneous
  Country: CN (occurrence: CN)
  Receive Date: 20221031
  Receipt Date: 20221212
  Transmission Date: 20230112
  Serious: Yes (Life-Threatening, Hospitalization, Disabling)
  Sender: FDA-Public Use
  Company Number: CN-TEVA-2022-CN-2820751

PATIENT
  Age: 65 Year
  Sex: Male
  Weight: 70 kg

DRUGS (4)
  1. AZILECT [Suspect]
     Active Substance: RASAGILINE MESYLATE
     Indication: Parkinson^s disease
     Dosage: UNIT DOSE: 1 OTHER
     Route: 048
     Dates: start: 20220908, end: 20221011
  2. ENTACAPONE [Suspect]
     Active Substance: ENTACAPONE
     Indication: Parkinson^s disease
     Dosage: UNIT DOSE: 1 OTHER.
     Route: 048
     Dates: start: 20221001, end: 20221007
  3. PRAMIPEXOLE DIHYDROCHLORIDE [Suspect]
     Active Substance: PRAMIPEXOLE DIHYDROCHLORIDE
     Indication: Parkinson^s disease
     Dosage: UNIT DOSE: 1 TABLET.
     Route: 048
     Dates: start: 20221001, end: 20221021
  4. METHYLDOPA [Suspect]
     Active Substance: METHYLDOPA
     Indication: Parkinson^s disease
     Dosage: DOSAGE: 0.75 OTHER 3 PER DAY
     Route: 065
     Dates: start: 20221001, end: 20221021

REACTIONS (1)
  - Rhabdomyolysis [Recovering/Resolving]

NARRATIVE: CASE EVENT DATE: 20221006
